FAERS Safety Report 4426336-6 (Version None)
Quarter: 2004Q3

REPORT INFORMATION
  Report Type: 
  Country: None (occurrence: None)
  Receive Date: 20040811
  Receipt Date: 20040803
  Transmission Date: 20050211
  Serious: Yes (Hospitalization)
  Sender: FDA-Public Use
  Company Number: 2004226501JP

PATIENT
  Age: 18 Year
  Sex: Female

DRUGS (1)
  1. VANTIN [Suspect]
     Indication: SALIVARY DUCT INFLAMMATION
     Dosage: ORAL
     Route: 048
     Dates: start: 20040712, end: 20040715

REACTIONS (2)
  - ARTHRALGIA [None]
  - MYALGIA [None]
